FAERS Safety Report 7607110-6 (Version None)
Quarter: 2011Q3

REPORT INFORMATION
  Report Type: 
  Country: None (occurrence: None)
  Receive Date: 20110706
  Receipt Date: 20110627
  Transmission Date: 20111222
  Serious: Yes (Life-Threatening, Hospitalization, Other)
  Sender: FDA-Public Use
  Company Number: 201110546

PATIENT
  Sex: Male

DRUGS (1)
  1. LIORESAL [Suspect]
     Indication: MUSCLE SPASTICITY
     Dosage: 12 MCG, DAILY, INTRATHECAL
     Route: 037

REACTIONS (8)
  - PYREXIA [None]
  - OVERDOSE [None]
  - SOMNOLENCE [None]
  - BRADYCARDIA [None]
  - HYPOPNOEA [None]
  - HYPOTONIA [None]
  - LETHARGY [None]
  - DEVICE MALFUNCTION [None]
